FAERS Safety Report 17016319 (Version 1)
Quarter: 2019Q4

REPORT INFORMATION
  Report Type: Spontaneous
  Country: US (occurrence: US)
  Receive Date: 20191109
  Receipt Date: 20191109
  Transmission Date: 20200122
  Serious: Yes (Other)
  Sender: FDA-Public Use
  Company Number: None

PATIENT
  Age: 48 Year
  Sex: Male
  Weight: 80.55 kg

DRUGS (1)
  1. SILDENAFIL CITRATE. [Suspect]
     Active Substance: SILDENAFIL CITRATE
     Indication: ERECTILE DYSFUNCTION
     Dosage: ?          OTHER FREQUENCY:THREE TIMES A WEEK;?
     Route: 048
     Dates: start: 20191108, end: 20191108

REACTIONS (2)
  - Dizziness [None]
  - Drug ineffective [None]

NARRATIVE: CASE EVENT DATE: 20191108
